FAERS Safety Report 9058332 (Version 1)
Quarter: 2013Q1

REPORT INFORMATION
  Report Type: Spontaneous
  Country: US (occurrence: US)
  Receive Date: 20130211
  Receipt Date: 20130211
  Transmission Date: 20140127
  Serious: Yes (Hospitalization)
  Sender: FDA-Public Use
  Company Number: US-BAYER-2013-015140

PATIENT
  Age: 42 Year
  Sex: Female
  Weight: 68.93 kg

DRUGS (18)
  1. YAZ [Suspect]
  2. YASMIN [Suspect]
  3. OCELLA [Suspect]
  4. ZYRTEC [Concomitant]
     Dosage: 10 MG, PRN
     Route: 048
  5. MOTRIN [Concomitant]
     Dosage: 400 MG, BID
     Route: 048
  6. MOTRIN [Concomitant]
     Dosage: 200 MG, PRN
  7. AZITHROMYCIN [Concomitant]
     Dosage: 500 MG, DAILY TIMES 3 DAYS
     Route: 048
  8. SINGULAIR [Concomitant]
     Dosage: 10 MG, DAILY
     Route: 048
  9. XOPENEX [Concomitant]
     Dosage: 1.25 MG/3 ML EVERY 4-8 HOURS AS NEEDED
     Dates: start: 20091201
  10. XOPENEX [Concomitant]
     Dosage: 45 ?G, QID
  11. ALBUTEROL [Concomitant]
     Dosage: UNK
     Dates: start: 20091210
  12. DOXYCYCLIN [DOXYCYCLINE] [Concomitant]
     Dosage: 100 MG, BID
     Route: 048
  13. PREDNISONE [Concomitant]
     Dosage: 20 MG, ONCE DAILY
     Route: 048
  14. SUDAFED [Concomitant]
     Dosage: 60 MG, UNK
     Route: 048
  15. NYQUIL [Concomitant]
     Dosage: 15-30 ML
     Route: 048
  16. ALLEGRA [Concomitant]
     Dosage: 180 MG, UNK
     Route: 048
  17. RHINOCORT AQUA [Concomitant]
     Dosage: 8.6 G, UNK
     Route: 045
  18. JUICE AND FIBRE [Concomitant]
     Dosage: 1 DAILY
     Route: 048

REACTIONS (1)
  - Pulmonary embolism [None]
